FAERS Safety Report 19379849 (Version 2)
Quarter: 2021Q2

REPORT INFORMATION
  Report Type: Spontaneous
  Country: AT (occurrence: AT)
  Receive Date: 20210607
  Receipt Date: 20210607
  Transmission Date: 20210717
  Serious: Yes (Hospitalization, Other)
  Sender: FDA-Public Use
  Company Number: AT-B.I. PHARMACEUTICALS,INC./RIDGEFIELD-2021-BI-105808

PATIENT
  Age: 20 Year
  Sex: Male

DRUGS (2)
  1. PRADAXA [Suspect]
     Active Substance: DABIGATRAN ETEXILATE MESYLATE
     Indication: PULMONARY EMBOLISM
     Dates: start: 202007, end: 202103
  2. BECLOMETASONE;FORMOTEROL [Concomitant]
     Active Substance: BECLOMETHASONE\FORMOTEROL
     Indication: ASTHMA
     Dosage: 100/6 MICROGRAMM 2?0?2 HUB

REACTIONS (17)
  - Eosinophilic granulomatosis with polyangiitis [Unknown]
  - Hiatus hernia [Unknown]
  - Paraesthesia [Unknown]
  - Performance status decreased [Unknown]
  - Myalgia [Unknown]
  - Weight decreased [Unknown]
  - Chills [Unknown]
  - Diarrhoea [Unknown]
  - Dyspnoea [Unknown]
  - Pyrexia [Unknown]
  - Nasal obstruction [Unknown]
  - Peripheral swelling [Unknown]
  - Decreased appetite [Unknown]
  - COVID-19 [Unknown]
  - Deep vein thrombosis [Unknown]
  - Abdominal pain upper [Unknown]
  - Granulomatous dermatitis [Unknown]

NARRATIVE: CASE EVENT DATE: 202012
